FAERS Safety Report 17132839 (Version 2)
Quarter: 2020Q1

REPORT INFORMATION
  Report Type: Spontaneous
  Country: BR (occurrence: BR)
  Receive Date: 20191210
  Receipt Date: 20200112
  Transmission Date: 20200409
  Serious: No
  Sender: FDA-Public Use
  Company Number: BR-AMGEN-BRASP2013064173

PATIENT
  Age: 39 Year
  Sex: Female
  Weight: 74 kg

DRUGS (11)
  1. ENBREL [Suspect]
     Active Substance: ETANERCEPT
     Indication: RHEUMATOID ARTHRITIS
     Dosage: 50 MG, WEEKLY
     Route: 058
     Dates: start: 201101, end: 201911
  2. NUTRICALCIO [CALCIUM CARBONATE] [Concomitant]
     Dosage: UNK
  3. VELIJA [Concomitant]
     Active Substance: DULOXETINE HYDROCHLORIDE
     Dosage: UNK
  4. PRELONE [Concomitant]
     Active Substance: PREDNISOLONE
     Dosage: UNK
  5. BUPROPION. [Concomitant]
     Active Substance: BUPROPION
     Indication: FIBROMYALGIA
     Dosage: UNK (STRENGTH 150MG), BID
  6. METHOTREXATE. [Concomitant]
     Active Substance: METHOTREXATE
     Dosage: UNK
  7. FOLIC ACID. [Concomitant]
     Active Substance: FOLIC ACID
     Dosage: UNK
  8. NOVOFER [IRON] [Concomitant]
     Dosage: UNK
  9. PROCIMAX [Concomitant]
     Active Substance: CITALOPRAM HYDROBROMIDE
     Indication: FIBROMYALGIA
     Dosage: UNK (STRENGTH 40MG), ONCE A DAY
  10. NIMESULIDE [Concomitant]
     Active Substance: NIMESULIDE
     Dosage: UNK
  11. MUSCULARE [Concomitant]
     Dosage: UNK

REACTIONS (4)
  - Injection site swelling [Unknown]
  - Injection site pruritus [Unknown]
  - Injection site hypersensitivity [Unknown]
  - Injection site erythema [Unknown]

NARRATIVE: CASE EVENT DATE: 2011
